FAERS Safety Report 10517725 (Version 1)
Quarter: 2014Q4

REPORT INFORMATION
  Report Type: Spontaneous
  Country: IT (occurrence: IT)
  Receive Date: 20141014
  Receipt Date: 20141014
  Transmission Date: 20150528
  Serious: Yes (Other)
  Sender: FDA-Public Use
  Company Number: PHHY2014IT133585

PATIENT
  Age: 42 Year
  Sex: Male
  Weight: 85 kg

DRUGS (5)
  1. TRIATEC HCT [Suspect]
     Active Substance: HYDROCHLOROTHIAZIDE\RAMIPRIL
     Indication: HYPERTENSION
     Dosage: 1 DF (5 MG + 25 MG TABLETS), 14 TABLETS
     Route: 048
     Dates: start: 20140226, end: 20140519
  2. CONGESCOR [Concomitant]
     Active Substance: BISOPROLOL
     Indication: PRODUCT USED FOR UNKNOWN INDICATION
     Dosage: 5 MG, UNK
     Route: 048
  3. NORVASC [Suspect]
     Active Substance: AMLODIPINE BESYLATE
     Indication: HYPERTENSION
     Dosage: 25 MG, QD (14 TABLETS)
     Route: 048
     Dates: start: 20140226, end: 20140519
  4. RASILEZ [Suspect]
     Active Substance: ALISKIREN
     Indication: HYPERTENSION
     Dosage: 300 MG, 28 TABLETS
     Route: 048
     Dates: start: 20140226, end: 20140519
  5. IGROTON [Suspect]
     Active Substance: CHLORTHALIDONE
     Indication: HYPERTENSION
     Dosage: 25 MG, QD (30 TABLETS)
     Route: 048
     Dates: start: 20140226, end: 20140519

REACTIONS (5)
  - Flushing [Unknown]
  - No therapeutic response [Unknown]
  - Headache [Unknown]
  - Blood pressure increased [Unknown]
  - Hypertensive crisis [Unknown]

NARRATIVE: CASE EVENT DATE: 20140519
